FAERS Safety Report 16831224 (Version 1)
Quarter: 2019Q3

REPORT INFORMATION
  Report Type: Spontaneous
  Country: US (occurrence: US)
  Receive Date: 20190920
  Receipt Date: 20190920
  Transmission Date: 20191005
  Serious: Yes (Hospitalization)
  Sender: FDA-Public Use
  Company Number: US-BIOGEN-2008BI016696

PATIENT
  Age: 55 Year
  Sex: Female
  Weight: 86.26 kg

DRUGS (3)
  1. AVONEX [Suspect]
     Active Substance: INTERFERON BETA-1A
     Route: 030
  2. AVONEX [Suspect]
     Active Substance: INTERFERON BETA-1A
     Indication: MULTIPLE SCLEROSIS
     Route: 030
     Dates: start: 20030916, end: 200405
  3. AVONEX [Suspect]
     Active Substance: INTERFERON BETA-1A
     Route: 030
     Dates: start: 200405, end: 20080628

REACTIONS (7)
  - Sphincter of Oddi dysfunction [Recovered/Resolved]
  - Abdominal pain lower [Not Recovered/Not Resolved]
  - Pelvic fluid collection [Unknown]
  - Chest pain [Recovered/Resolved]
  - Pancreatitis relapsing [Recovered/Resolved]
  - Gastritis [Recovered/Resolved]
  - Cystitis interstitial [Recovered/Resolved]

NARRATIVE: CASE EVENT DATE: 20080621
